FAERS Safety Report 24453216 (Version 7)
Quarter: 2025Q1

REPORT INFORMATION
  Report Type: Report from Study
  Country: ES (occurrence: ES)
  Receive Date: 20241017
  Receipt Date: 20250117
  Transmission Date: 20250409
  Serious: Yes (Death, Hospitalization)
  Sender: IOVANCE BIOTHERAPEUTICS MANUFACTURING LLC
  Company Number: ES-IOVANCE BIOTHERAPEUTICS INC.-IOV2024000044

PATIENT
  Sex: Male

DRUGS (9)
  1. ALDESLEUKIN [Suspect]
     Active Substance: ALDESLEUKIN
     Indication: Product used for unknown indication
     Route: 065
     Dates: start: 20240813, end: 20240815
  2. CYCLOPHOSPHAMIDE [Suspect]
     Active Substance: CYCLOPHOSPHAMIDE
     Indication: Product used for unknown indication
     Route: 065
     Dates: start: 20240806, end: 20240807
  3. LIFILEUCEL [Suspect]
     Active Substance: LIFILEUCEL
     Indication: Product used for unknown indication
     Route: 065
     Dates: start: 20240813, end: 20240813
  4. FLUDARABINE [Suspect]
     Active Substance: FLUDARABINE PHOSPHATE
     Indication: Product used for unknown indication
     Route: 065
     Dates: start: 20240808, end: 20240812
  5. PEMBROLIZUMAB [Suspect]
     Active Substance: PEMBROLIZUMAB
     Indication: Product used for unknown indication
     Route: 065
     Dates: start: 20240715, end: 20240905
  6. IPILIMUMAB [Suspect]
     Active Substance: IPILIMUMAB
     Indication: Product used for unknown indication
     Route: 065
  7. NIVOLUMAB [Suspect]
     Active Substance: NIVOLUMAB
     Indication: Product used for unknown indication
     Route: 065
  8. GANCICLOVIR [Concomitant]
     Active Substance: GANCICLOVIR
     Indication: Product used for unknown indication
     Route: 048
     Dates: start: 20240929, end: 20240930
  9. FOSCARNET [Concomitant]
     Active Substance: FOSCARNET
     Indication: Product used for unknown indication
     Route: 042
     Dates: start: 20240930, end: 20241028

REACTIONS (3)
  - Haemophagocytic lymphohistiocytosis [Not Recovered/Not Resolved]
  - Haemorrhage intracranial [Fatal]
  - Thrombocytopenia [Not Recovered/Not Resolved]

NARRATIVE: CASE EVENT DATE: 20240925
